FAERS Safety Report 5748447-5 (Version None)
Quarter: 2008Q2

REPORT INFORMATION
  Report Type: 
  Country: None (occurrence: None)
  Receive Date: 20080520
  Receipt Date: 20080512
  Transmission Date: 20081010
  Serious: Yes (Other)
  Sender: FDA-Public Use
  Company Number: 2008SP008462

PATIENT
  Age: 62 Year
  Sex: Female
  Weight: 58.9676 kg

DRUGS (5)
  1. MIRALAX [Suspect]
     Indication: DRUG USE FOR UNKNOWN INDICATION
     Dosage: 17 GM; HS; PO
     Route: 048
     Dates: start: 20080423, end: 20080425
  2. NEXIUM (CON.) [Concomitant]
  3. AMTIVERT /00007101/ (CON) [Concomitant]
  4. CALAN /00014302/ (CON.) [Concomitant]
  5. XANAX (CON.) [Concomitant]

REACTIONS (2)
  - MUSCLE SPASMS [None]
  - RECTAL HAEMORRHAGE [None]
